FAERS Safety Report 4875776-X (Version None)
Quarter: 2006Q1

REPORT INFORMATION
  Report Type: 
  Country: None (occurrence: None)
  Receive Date: 20060104
  Receipt Date: 20041210
  Transmission Date: 20060701
  Serious: Yes (Hospitalization)
  Sender: FDA-Public Use
  Company Number: 194266

PATIENT
  Age: 48 Year
  Sex: Male
  Weight: 98.5 kg

DRUGS (3)
  1. AVONEX [Suspect]
     Indication: MULTIPLE SCLEROSIS
     Dosage: 30 UG;QW;IM
     Route: 030
     Dates: start: 20040305, end: 20040801
  2. BACLOFEN [Concomitant]
  3. ATORVASTATIN                    (SORTIS) [Concomitant]

REACTIONS (14)
  - ABDOMINAL DISTENSION [None]
  - ABDOMINAL HERNIA [None]
  - ANAL SPHINCTER ATONY [None]
  - CONDITION AGGRAVATED [None]
  - EYE DISORDER [None]
  - GASTRIC DISORDER [None]
  - GASTRITIS EROSIVE [None]
  - HAEMORRHOIDS [None]
  - ILEUS [None]
  - LEUKOCYTOSIS [None]
  - MULTIPLE SCLEROSIS [None]
  - OPTIC NEURITIS [None]
  - PARAESTHESIA [None]
  - URINARY TRACT INFECTION [None]
